FAERS Safety Report 5129850-3 (Version None)
Quarter: 2006Q4

REPORT INFORMATION
  Report Type: 
  Country: None (occurrence: None)
  Receive Date: 20061018
  Receipt Date: 20060906
  Transmission Date: 20070319
  Serious: Yes (Hospitalization)
  Sender: FDA-Public Use
  Company Number: PHBS2006JP13515

PATIENT
  Age: 75 Year
  Sex: Male

DRUGS (7)
  1. FASTIC [Suspect]
     Indication: DIABETES MELLITUS
     Dosage: 90 MG/DAY
     Route: 048
     Dates: start: 20060202, end: 20060208
  2. FASTIC [Suspect]
     Dosage: 180 MG/DAY
     Route: 048
     Dates: start: 20060209, end: 20060215
  3. FASTIC [Suspect]
     Dosage: 270 MG/DAY
     Route: 048
     Dates: start: 20060216, end: 20060802
  4. BLOPRESS [Concomitant]
     Dosage: 4 MG, UNK
  5. ASPIRIN [Concomitant]
     Dosage: 100 MG, UNK
  6. NITRODERM [Concomitant]
  7. NORVASC [Concomitant]
     Dosage: 7.5 MG, UNK

REACTIONS (1)
  - ANGINA PECTORIS [None]
